FAERS Safety Report 6436215-0 (Version None)
Quarter: 2009Q4

REPORT INFORMATION
  Report Type: 
  Country: None (occurrence: None)
  Receive Date: 20091111
  Receipt Date: 20091029
  Transmission Date: 20100525
  Serious: Yes (Hospitalization)
  Sender: FDA-Public Use
  Company Number: FR-PFIZER INC-2009290310

PATIENT
  Age: 69 Year
  Sex: Male

DRUGS (4)
  1. SOLU-MEDROL [Suspect]
     Indication: PROSTATE CANCER
     Dosage: UNK
     Route: 042
     Dates: start: 20090921, end: 20090921
  2. ZOMETA [Suspect]
     Indication: PROSTATE CANCER
     Dosage: UNK MG, UNK
     Route: 042
     Dates: start: 20090921, end: 20090921
  3. ZOPHREN [Suspect]
     Indication: PROSTATE CANCER
     Dosage: UNK
     Route: 042
     Dates: start: 20090921, end: 20090921
  4. TAXOTERE [Suspect]
     Indication: PROSTATE CANCER
     Dosage: UNK
     Route: 042
     Dates: start: 20090921, end: 20090921

REACTIONS (3)
  - ABDOMINAL PAIN [None]
  - DYSPNOEA [None]
  - FEELING HOT [None]
